FAERS Safety Report 9023930 (Version 1)
Quarter: 2013Q1

REPORT INFORMATION
  Report Type: Spontaneous
  Country: US (occurrence: US)
  Receive Date: 20130121
  Receipt Date: 20130121
  Transmission Date: 20140127
  Serious: No
  Sender: FDA-Public Use
  Company Number: US-PFIZER INC-2013022128

PATIENT
  Sex: Male

DRUGS (3)
  1. LYRICA [Suspect]
     Dosage: 50 MG, UNK
  2. LYRICA [Suspect]
     Dosage: 75 MG, UNK
  3. CYMBALTA [Concomitant]
     Dosage: UNK

REACTIONS (3)
  - Feeling abnormal [Unknown]
  - Pain in extremity [Unknown]
  - Withdrawal syndrome [Unknown]
